FAERS Safety Report 8770705 (Version 1)
Quarter: 2012Q4

REPORT INFORMATION
  Report Type: 
  Country: US (occurrence: US)
  Receive Date: 20120906
  Receipt Date: 20120906
  Transmission Date: 20130627
  Serious: Yes (Hospitalization)
  Sender: FDA-Public Use
  Company Number: US-BAYER-2012-091153

PATIENT
  Age: 21 Year
  Sex: Female
  Weight: 74.83 kg

DRUGS (5)
  1. YAZ [Suspect]
     Dosage: UNK
  2. GIANVI [Suspect]
     Dosage: UNK
  3. XANAX [Concomitant]
     Dosage: 0.25 mg, four times a day
     Route: 048
  4. AMBIEN [Concomitant]
     Dosage: 10 mg, nightly
     Route: 048
  5. LEXAPRO [Concomitant]
     Dosage: 10 mg, daily
     Route: 048

REACTIONS (1)
  - Subclavian vein thrombosis [None]
